FAERS Safety Report 22082728 (Version 3)
Quarter: 2023Q1

REPORT INFORMATION
  Report Type: Spontaneous
  Country: US (occurrence: None)
  Receive Date: 20230310
  Receipt Date: 20230325
  Transmission Date: 20230418
  Serious: Yes (Hospitalization)
  Sender: FDA-Public Use
  Company Number: US-ROCHE-3301633

PATIENT
  Age: 17 Year
  Sex: Male

DRUGS (5)
  1. NUTROPIN AQ [Suspect]
     Active Substance: SOMATROPIN
     Indication: Hypopituitarism
     Route: 058
     Dates: start: 202212
  2. NUTROPIN AQ [Suspect]
     Active Substance: SOMATROPIN
  3. NORDITROPIN [Concomitant]
     Active Substance: SOMATROPIN
     Route: 058
     Dates: start: 202110, end: 202212
  4. PROZAC [Concomitant]
     Active Substance: FLUOXETINE HYDROCHLORIDE
     Indication: Post-traumatic stress disorder
     Route: 048
     Dates: start: 2019
  5. NEXIUM [Concomitant]
     Active Substance: ESOMEPRAZOLE MAGNESIUM
     Route: 048

REACTIONS (6)
  - Device issue [Unknown]
  - Device defective [Unknown]
  - Needle issue [Unknown]
  - Epiphysiolysis [Recovering/Resolving]
  - Arthropathy [Recovering/Resolving]
  - Pain [Recovered/Resolved]

NARRATIVE: CASE EVENT DATE: 20230101
